FAERS Safety Report 6279849-9 (Version None)
Quarter: 2009Q3

REPORT INFORMATION
  Report Type: 
  Country: None (occurrence: None)
  Receive Date: 20090723
  Receipt Date: 20090714
  Transmission Date: 20100115
  Serious: Yes (Hospitalization, Other)
  Sender: FDA-Public Use
  Company Number: PHHY2009KR26030

PATIENT
  Sex: Female

DRUGS (1)
  1. ACLASTA [Suspect]
     Indication: OSTEOPOROSIS
     Dosage: 5 MG, UNK
     Route: 042
     Dates: start: 20090616

REACTIONS (6)
  - ARTHRALGIA [None]
  - FLANK PAIN [None]
  - FOOT FRACTURE [None]
  - JOINT SPRAIN [None]
  - JOINT SWELLING [None]
  - LUMBAR VERTEBRAL FRACTURE [None]
